FAERS Safety Report 8035865-8 (Version None)
Quarter: 2012Q1

REPORT INFORMATION
  Report Type: 
  Country: None (occurrence: None)
  Receive Date: 20120111
  Receipt Date: 20120111
  Transmission Date: 20120608
  Serious: Yes (Life-Threatening, Hospitalization)
  Sender: FDA-Public Use
  Company Number: None

PATIENT
  Sex: Male
  Weight: 60.781 kg

DRUGS (3)
  1. PANITUMUMAB [Concomitant]
     Route: 051
  2. FLUOROURACIL [Concomitant]
     Dosage: 750MG/M2/DAY
     Route: 042
     Dates: start: 20111212, end: 20111216
  3. CISPLATIN [Suspect]
     Dosage: 60 MG/M2
     Route: 042
     Dates: start: 20111212, end: 20111212

REACTIONS (4)
  - HEMIPARESIS [None]
  - CAROTID ARTERY OCCLUSION [None]
  - DYSARTHRIA [None]
  - ISCHAEMIC STROKE [None]
